FAERS Safety Report 4709088-1 (Version None)
Quarter: 2005Q3

REPORT INFORMATION
  Report Type: 
  Country: None (occurrence: None)
  Receive Date: 20050707
  Receipt Date: 20050707
  Transmission Date: 20060218
  Serious: No
  Sender: FDA-Public Use
  Company Number: None

PATIENT
  Age: 59 Year
  Sex: Female

DRUGS (1)
  1. PACLITAXEL [Suspect]
     Indication: BREAST CANCER METASTATIC
     Dosage: 153 MG Q3WKS/1 WK OFF INTRAVENOUS
     Route: 042
     Dates: start: 20031124, end: 20050627

REACTIONS (17)
  - ANOREXIA [None]
  - ARRHYTHMIA [None]
  - ASTHENIA [None]
  - DIZZINESS POSTURAL [None]
  - DYSPNOEA EXERTIONAL [None]
  - NAIL DISORDER [None]
  - NASAL CONGESTION [None]
  - NAUSEA [None]
  - ORAL INTAKE REDUCED [None]
  - POST PROCEDURAL DIARRHOEA [None]
  - PRODUCTIVE COUGH [None]
  - PULSE ABNORMAL [None]
  - RHINORRHOEA [None]
  - SNEEZING [None]
  - TINNITUS [None]
  - VISUAL DISTURBANCE [None]
  - VOMITING [None]
